FAERS Safety Report 15375591 (Version 2)
Quarter: 2018Q4

REPORT INFORMATION
  Report Type: Report from Study
  Country: US (occurrence: US)
  Receive Date: 20180912
  Receipt Date: 20181008
  Transmission Date: 20190204
  Serious: No
  Sender: FDA-Public Use
  Company Number: US-B.I. PHARMACEUTICALS,INC./RIDGEFIELD-2018-BI-044617

PATIENT
  Age: 76 Year
  Sex: Female

DRUGS (2)
  1. OFEV [Suspect]
     Active Substance: NINTEDANIB
     Indication: IDIOPATHIC PULMONARY FIBROSIS
     Dosage: ONE CAPSULE BID;  FORM STRENGTH: 150 MG; CAPSULE ACTION(S) TAKEN WITH PRODUCT: DOSE NOT CHANGED
     Route: 048
     Dates: start: 20180802, end: 20180903
  2. OFEV [Suspect]
     Active Substance: NINTEDANIB
     Dosage: ONE CAPSULE BID;  FORM STRENGTH: 150 MG; CAPSULEACTION(S) TAKEN WITH PRODUCT: DOSE NOT CHANGED
     Route: 048
     Dates: start: 20180904

REACTIONS (5)
  - Weight decreased [Unknown]
  - Diarrhoea [Unknown]
  - Diarrhoea [Recovered/Resolved]
  - Haemorrhoidal haemorrhage [Recovered/Resolved]
  - Constipation [Unknown]

NARRATIVE: CASE EVENT DATE: 20180804
